FAERS Safety Report 24562303 (Version 1)
Quarter: 2024Q4

REPORT INFORMATION
  Report Type: Spontaneous
  Country: IN (occurrence: IN)
  Receive Date: 20241029
  Receipt Date: 20241029
  Transmission Date: 20250114
  Serious: Yes (Death, Other)
  Sender: PFIZER
  Company Number: IN-PFIZER INC-PV202300196502

PATIENT
  Age: 75 Year
  Sex: Female

DRUGS (2)
  1. PALBOCICLIB [Suspect]
     Active Substance: PALBOCICLIB
     Indication: Breast cancer metastatic
     Dosage: 125 MG OD, X21 DAYS (AFTER 30 DAYS)
     Route: 048
  2. PALBOCICLIB [Suspect]
     Active Substance: PALBOCICLIB
     Dosage: 125 MG, CYCLIC 1-0 X 21 DAY
     Route: 048

REACTIONS (3)
  - Death [Fatal]
  - Neutropenia [Unknown]
  - Off label use [Unknown]

NARRATIVE: CASE EVENT DATE: 20241001
